FAERS Safety Report 9203332 (Version 2)
Quarter: 2013Q4

REPORT INFORMATION
  Report Type: Spontaneous
  Country: US (occurrence: US)
  Receive Date: 20130402
  Receipt Date: 20131210
  Transmission Date: 20140711
  Serious: Yes (Disabling, Other)
  Sender: FDA-Public Use
  Company Number: US-BAYER-2013-039102

PATIENT
  Age: 27 Year
  Sex: Female

DRUGS (9)
  1. YASMIN [Suspect]
     Route: 048
  2. YAZ [Suspect]
  3. OCELLA [Suspect]
  4. AMOXICILLIN [Concomitant]
     Indication: URINARY TRACT INFECTION
     Route: 048
  5. CLARITIN [Concomitant]
     Route: 048
  6. GAS-X [Concomitant]
     Route: 048
  7. PREVACID [Concomitant]
     Route: 048
  8. VITAMIN C [Concomitant]
     Route: 048
  9. NUBAIN [Concomitant]

REACTIONS (6)
  - Gallbladder injury [None]
  - Cholecystitis chronic [None]
  - Injury [None]
  - General physical health deterioration [None]
  - Emotional distress [None]
  - Pain [None]
